FAERS Safety Report 19458855 (Version 1)
Quarter: 2021Q2

REPORT INFORMATION
  Report Type: Spontaneous
  Country: US (occurrence: US)
  Receive Date: 20210624
  Receipt Date: 20210624
  Transmission Date: 20210717
  Serious: No
  Sender: FDA-Public Use
  Company Number: US-MYLANLABS-2021M1035615

PATIENT
  Sex: Female

DRUGS (1)
  1. ESTRADIOL TRANSDERMAL SYSTEM [Suspect]
     Active Substance: ESTRADIOL
     Indication: HYSTERECTOMY
     Dosage: 0.1 MILLIGRAM, QD (ONE PATCH A WEEK)
     Route: 062

REACTIONS (3)
  - Product quality issue [Not Recovered/Not Resolved]
  - Wrong technique in product usage process [Unknown]
  - Product adhesion issue [Not Recovered/Not Resolved]
